FAERS Safety Report 6726777-8 (Version None)
Quarter: 2010Q2

REPORT INFORMATION
  Report Type: 
  Country: None (occurrence: None)
  Receive Date: 20100516
  Receipt Date: 20100504
  Transmission Date: 20101027
  Serious: Yes (Other)
  Sender: FDA-Public Use
  Company Number: US-JNJFOC-20100503005

PATIENT
  Age: 3 Year

DRUGS (2)
  1. CHILDRENS TYLENOL [Suspect]
     Route: 048
  2. CHILDRENS TYLENOL [Suspect]
     Indication: PYREXIA
     Route: 048

REACTIONS (3)
  - ABASIA [None]
  - PAIN IN EXTREMITY [None]
  - PRODUCT QUALITY ISSUE [None]
